FAERS Safety Report 23857155 (Version 2)
Quarter: 2024Q2

REPORT INFORMATION
  Report Type: Spontaneous
  Country: US (occurrence: US)
  Receive Date: 20240515
  Receipt Date: 20240621
  Transmission Date: 20240715
  Serious: Yes (Other)
  Sender: FDA-Public Use
  Company Number: US-BAYER-2024A066722

PATIENT
  Age: 21 Year
  Sex: Female

DRUGS (1)
  1. MIRENA [Suspect]
     Active Substance: LEVONORGESTREL
     Indication: Contraception
     Dosage: 20?G/DAY
     Route: 015
     Dates: start: 20220316, end: 20240420

REACTIONS (6)
  - Ruptured ectopic pregnancy [None]
  - Ectopic pregnancy [None]
  - Device expulsion [Recovered/Resolved]
  - Pelvic pain [None]
  - Abnormal uterine bleeding [None]
  - Drug ineffective [None]

NARRATIVE: CASE EVENT DATE: 20220401
